FAERS Safety Report 20719171 (Version 1)
Quarter: 2022Q2

REPORT INFORMATION
  Report Type: Other
  Country: CA (occurrence: CA)
  Receive Date: 20220418
  Receipt Date: 20220418
  Transmission Date: 20220721
  Serious: Yes (Death, Other)
  Sender: FDA-Public Use
  Company Number: CA-CELLTRION INC.-2022CA004677

PATIENT

DRUGS (1)
  1. RITUXIMAB [Suspect]
     Active Substance: RITUXIMAB
     Indication: Product used for unknown indication
     Route: 065

REACTIONS (2)
  - Ill-defined disorder [Fatal]
  - Lymphoma [Fatal]
